FAERS Safety Report 4308343-7 (Version None)
Quarter: 2004Q1

REPORT INFORMATION
  Report Type: 
  Country: None (occurrence: None)
  Receive Date: 20040301
  Receipt Date: 20040217
  Transmission Date: 20041129
  Serious: Yes (Hospitalization)
  Sender: FDA-Public Use
  Company Number: 200410646FR

PATIENT
  Age: 59 Year
  Sex: Male
  Weight: 88 kg

DRUGS (11)
  1. RIFADIN [Suspect]
     Route: 048
  2. LASILIX [Suspect]
     Route: 048
  3. TEGELINE [Suspect]
     Indication: IDIOPATHIC THROMBOCYTOPENIC PURPURA
     Route: 042
     Dates: start: 20040114, end: 20040116
  4. CIFLOX [Suspect]
     Route: 048
     Dates: start: 20040113, end: 20040121
  5. NEXIUM [Suspect]
     Route: 048
     Dates: start: 20031228
  6. ZESTRIL [Suspect]
     Route: 048
     Dates: start: 20040105
  7. EUPRESSYL [Concomitant]
  8. MIXTARD HUMAN 70/30 [Concomitant]
  9. AMLOR [Concomitant]
  10. CALCIDOSE [Concomitant]
  11. PREVISCAN [Concomitant]

REACTIONS (14)
  - ABDOMINAL PAIN UPPER [None]
  - ALPHA HAEMOLYTIC STREPTOCOCCAL INFECTION [None]
  - ANAEMIA [None]
  - CORONARY ARTERY SURGERY [None]
  - CREATINE PHOSPHOKINASE DECREASED [None]
  - ELECTROCARDIOGRAM T WAVE ABNORMAL [None]
  - HYPERKALAEMIA [None]
  - HYPONATRAEMIA [None]
  - IDIOPATHIC THROMBOCYTOPENIC PURPURA [None]
  - MEDIASTINITIS [None]
  - OSTEITIS [None]
  - RENAL FAILURE ACUTE [None]
  - STAPHYLOCOCCAL INFECTION [None]
  - TROPONIN INCREASED [None]
